FAERS Safety Report 6770880-3 (Version None)
Quarter: 2010Q2

REPORT INFORMATION
  Report Type: 
  Country: None (occurrence: None)
  Receive Date: 20100614
  Receipt Date: 20100531
  Transmission Date: 20101027
  Serious: Yes (Disabling)
  Sender: FDA-Public Use
  Company Number: DSM-2010-00827

PATIENT
  Age: 72 Year
  Sex: Female

DRUGS (6)
  1. VOTUM PLUS (HYDROCHLOROTHIAZIDE, OLMESARTAN MEDOXOMIL) (TABLET) (HYDRO [Suspect]
     Indication: HYPERTENSION
     Dosage: 20/25 MG, ORAL
     Route: 048
     Dates: start: 20091101, end: 20100510
  2. OLMESARTAN MEDOXOMIL [Suspect]
     Indication: HYPERTENSION
     Dosage: 20 MG, ORAL
     Route: 048
     Dates: start: 20091101, end: 20100510
  3. NEBIVOLOL HCL [Concomitant]
  4. MOXONIDIN (MOXONIDINE) (MOXONIDINE) [Concomitant]
  5. CARMEN (LERCANIDIPINE) (LERCANIDIPINE) [Concomitant]
  6. L-THYROXIN (LEVOTHYROXINE SODIUM) (LEVOTHYROXINE SODIUM) [Concomitant]

REACTIONS (5)
  - BONE PAIN [None]
  - JOINT SWELLING [None]
  - MYALGIA [None]
  - PAROTITIS [None]
  - SALIVARY GLAND CYST [None]
